FAERS Safety Report 11221765 (Version 2)
Quarter: 2015Q2

REPORT INFORMATION
  Report Type: Spontaneous
  Country: DE (occurrence: DE)
  Receive Date: 20150626
  Receipt Date: 20150629
  Transmission Date: 20150821
  Serious: Yes (Other)
  Sender: FDA-Public Use
  Company Number: DE-PFIZER INC-2015210799

PATIENT
  Age: 26 Year
  Sex: Female
  Weight: 56 kg

DRUGS (4)
  1. AMLODIPINE BESILATE [Suspect]
     Active Substance: AMLODIPINE BESYLATE
     Indication: PULMONARY ARTERIAL HYPERTENSION
     Dosage: 1.25 MG, 2X/DAY, 1 TRIMESTER;0. - 37.6. GESTATIONAL WEEK
     Route: 048
     Dates: start: 20131004, end: 20140626
  2. NEOVIN [Concomitant]
     Indication: PROPHYLAXIS OF NEURAL TUBE DEFECT
     Dosage: 0.4 MG, DAILY,1 TRIMESTER,0. - 12. GESTATIONAL WEEK
     Route: 048
  3. IMIDIN FUER KINDER [Concomitant]
     Dosage: AT NIGHT; 3 TRIMESTER,30.3. - 30.3. GESTATIONAL WEEK
     Route: 045
     Dates: start: 20140505, end: 20140505
  4. SILDENAFIL CITRATE. [Suspect]
     Active Substance: SILDENAFIL CITRATE
     Indication: PULMONARY ARTERIAL HYPERTENSION
     Dosage: 20 MG, 3X/DAY; 1 TRIMESTER;0. - 37.6. GESTATIONAL WEEK
     Route: 048
     Dates: start: 20131004, end: 20140626

REACTIONS (2)
  - Off label use [Unknown]
  - Oligohydramnios [Recovered/Resolved]

NARRATIVE: CASE EVENT DATE: 20131004
